FAERS Safety Report 5363580-8 (Version None)
Quarter: 2007Q2

REPORT INFORMATION
  Report Type: 
  Country: None (occurrence: None)
  Receive Date: 20070620
  Receipt Date: 20070606
  Transmission Date: 20071010
  Serious: Yes (Other)
  Sender: FDA-Public Use
  Company Number: A0654726A

PATIENT
  Age: 19 Year
  Sex: Female

DRUGS (1)
  1. CLAVULIN [Suspect]
     Indication: DRUG USE FOR UNKNOWN INDICATION
     Dosage: 875MG TWICE PER DAY
     Route: 048

REACTIONS (2)
  - DERMATITIS PSORIASIFORM [None]
  - THROAT TIGHTNESS [None]
